FAERS Safety Report 11632861 (Version 1)
Quarter: 2015Q4

REPORT INFORMATION
  Report Type: Spontaneous
  Country: US (occurrence: None)
  Receive Date: 20151014
  Receipt Date: 20151014
  Transmission Date: 20160304
  Serious: No
  Sender: FDA-Public Use
  Company Number: None

PATIENT
  Age: 78 Year
  Sex: Female

DRUGS (1)
  1. ALPHAGAN P [Suspect]
     Active Substance: BRIMONIDINE TARTRATE
     Indication: OPEN ANGLE GLAUCOMA
     Route: 047
     Dates: start: 20151001, end: 20151009

REACTIONS (4)
  - Eye irritation [None]
  - Rhinorrhoea [None]
  - Oropharyngeal pain [None]
  - Oral mucosal blistering [None]

NARRATIVE: CASE EVENT DATE: 20151009
